FAERS Safety Report 22585065 (Version 2)
Quarter: 2023Q2

REPORT INFORMATION
  Report Type: Spontaneous
  Country: US (occurrence: US)
  Receive Date: 20230609
  Receipt Date: 20230619
  Transmission Date: 20230722
  Serious: Yes (Death, Hospitalization)
  Sender: FDA-Public Use
  Company Number: US-TEVA-2023-US-2893309

PATIENT
  Age: 16 Year
  Sex: Male

DRUGS (6)
  1. VORICONAZOLE [Suspect]
     Active Substance: VORICONAZOLE
     Indication: Bronchopulmonary aspergillosis
     Route: 065
  2. VORICONAZOLE [Suspect]
     Active Substance: VORICONAZOLE
     Indication: Aspergillus infection
  3. CEFTRIAXONE [Concomitant]
     Active Substance: CEFTRIAXONE
     Indication: Evidence based treatment
     Route: 065
  4. VANCOMYCIN [Concomitant]
     Active Substance: VANCOMYCIN
     Indication: Evidence based treatment
     Route: 065
  5. AZITHROMYCIN [Concomitant]
     Active Substance: AZITHROMYCIN
     Indication: Evidence based treatment
     Route: 065
  6. AMPHOTERICIN B [Concomitant]
     Active Substance: AMPHOTERICIN B
     Indication: Evidence based treatment
     Route: 065

REACTIONS (1)
  - Drug ineffective [Fatal]
